FAERS Safety Report 23885619 (Version 5)
Quarter: 2024Q3

REPORT INFORMATION
  Report Type: Report from Study
  Country: US (occurrence: US)
  Receive Date: 20240522
  Receipt Date: 20240703
  Transmission Date: 20241017
  Serious: No
  Sender: ASTELLAS
  Company Number: US-ASTELLAS-2024US014441

PATIENT
  Sex: Male

DRUGS (5)
  1. AVACINCAPTAD PEGOL [Suspect]
     Active Substance: AVACINCAPTAD PEGOL
     Indication: Age-related macular degeneration
     Dosage: 1 DF (1 VIAL; 2 MG (0.1 ML OF 20 MG/ML)), OTHER (Q28 DAYS), BOTH EYES
     Route: 050
     Dates: start: 20240516
  2. AVACINCAPTAD PEGOL [Suspect]
     Active Substance: AVACINCAPTAD PEGOL
     Indication: Age-related macular degeneration
     Dosage: 1 DF (1 VIAL; 2 MG (0.1 ML OF 20 MG/ML)), OTHER (Q28 DAYS), BOTH EYES
     Route: 050
     Dates: start: 20240516
  3. AVACINCAPTAD PEGOL [Suspect]
     Active Substance: AVACINCAPTAD PEGOL
     Indication: Age-related macular degeneration
     Dosage: 1 DF (1 VIAL; 2 MG (0.1 ML OF 20 MG/ML)), OTHER (Q28 DAYS), BOTH EYES
     Route: 050
     Dates: start: 20240516
  4. AVACINCAPTAD PEGOL [Suspect]
     Active Substance: AVACINCAPTAD PEGOL
     Indication: Age-related macular degeneration
     Dosage: 1 DF (1 VIAL; 2 MG (0.1 ML OF 20 MG/ML)), OTHER (Q28 DAYS), BOTH EYES
     Route: 050
     Dates: start: 20240516
  5. AVACINCAPTAD PEGOL [Suspect]
     Active Substance: AVACINCAPTAD PEGOL
     Indication: Age-related macular degeneration
     Dosage: 1 DF (1 VIAL; 2 MG (0.1 ML OF 20 MG/ML)), OTHER (Q28 DAYS), BOTH EYES
     Route: 050
     Dates: start: 20240516

REACTIONS (3)
  - Intercepted product preparation error [Unknown]
  - Device issue [Unknown]
  - Syringe issue [Unknown]
